FAERS Safety Report 15754893 (Version 1)
Quarter: 2018Q4

REPORT INFORMATION
  Report Type: Spontaneous
  Country: CN (occurrence: CN)
  Receive Date: 20181224
  Receipt Date: 20181224
  Transmission Date: 20190205
  Serious: Yes (Hospitalization)
  Sender: FDA-Public Use
  Company Number: CN-ASTRAZENECA-2018SF69333

PATIENT
  Age: 42 Year
  Sex: Female

DRUGS (8)
  1. RISPERIDONE. [Suspect]
     Active Substance: RISPERIDONE
     Indication: SCHIZOPHRENIA
     Dosage: 2 UNITS BID
     Route: 048
  2. CLOZAPINE. [Suspect]
     Active Substance: CLOZAPINE
     Indication: SCHIZOPHRENIA
     Dosage: 4 UNITS BID
     Route: 048
     Dates: start: 20141009
  3. DIPHENHYDRAMINE. [Suspect]
     Active Substance: DIPHENHYDRAMINE
     Indication: SCHIZOPHRENIA
     Dosage: 2 UNITS BID
     Route: 048
  4. QUETIAPINE. [Suspect]
     Active Substance: QUETIAPINE
     Dosage: 2 UNITS BID
     Route: 048
     Dates: start: 20141009
  5. QUETIAPINE. [Suspect]
     Active Substance: QUETIAPINE
     Dosage: 2 UNITS BID
     Route: 048
  6. CLOZAPINE. [Suspect]
     Active Substance: CLOZAPINE
     Indication: SCHIZOPHRENIA
     Dosage: 4 UNITS BID
     Route: 048
  7. RISPERIDONE. [Suspect]
     Active Substance: RISPERIDONE
     Indication: SCHIZOPHRENIA
     Dosage: 3 UNITS BID
     Route: 048
     Dates: start: 20141009
  8. DIPHENHYDRAMINE. [Suspect]
     Active Substance: DIPHENHYDRAMINE
     Indication: SCHIZOPHRENIA
     Dosage: 2 UNITS BID
     Route: 048
     Dates: start: 20141009

REACTIONS (2)
  - Ileus paralytic [Recovered/Resolved]
  - Neuroleptic malignant syndrome [Recovered/Resolved]
